FAERS Safety Report 9696262 (Version 3)
Quarter: 2014Q1

REPORT INFORMATION
  Report Type: Spontaneous
  Country: GB (occurrence: GB)
  Receive Date: 20131119
  Receipt Date: 20140317
  Transmission Date: 20141002
  Serious: Yes (Other)
  Sender: FDA-Public Use
  Company Number: GB-PFIZER INC-2013323540

PATIENT
  Age: 40 Year
  Sex: Male

DRUGS (4)
  1. VANCOMYCIN HCL [Suspect]
     Indication: STAPHYLOCOCCAL INFECTION
     Dosage: 4000 MG, UNK
     Dates: start: 201002, end: 201010
  2. CUBICIN [Suspect]
     Indication: ENDOCARDITIS STAPHYLOCOCCAL
     Dosage: 500 MG, UNK
     Dates: start: 201008, end: 201010
  3. CUBICIN [Suspect]
     Dosage: 700 MG, UNK
     Dates: start: 201010, end: 201106
  4. RIFAMPICIN [Suspect]
     Indication: ENDOCARDITIS STAPHYLOCOCCAL
     Dosage: UNK
     Dates: start: 201002, end: 201109

REACTIONS (5)
  - Staphylococcal bacteraemia [Recovered/Resolved]
  - Embolism [Recovering/Resolving]
  - Staphylococcal bacteraemia [Recovered/Resolved]
  - Cardiac valve vegetation [Recovering/Resolving]
  - No therapeutic response [Unknown]
